FAERS Safety Report 23511085 (Version 1)
Quarter: 2024Q1

REPORT INFORMATION
  Report Type: Spontaneous
  Country: US (occurrence: US)
  Receive Date: 20240212
  Receipt Date: 20240212
  Transmission Date: 20240409
  Serious: No
  Sender: FDA-Public Use
  Company Number: US-LEO Pharma-367541

PATIENT
  Age: 32 Year
  Sex: Male

DRUGS (4)
  1. CALCIPOTRIENE [Suspect]
     Active Substance: CALCIPOTRIENE
     Indication: Product used for unknown indication
     Route: 003
  2. CLOBETASOL [Concomitant]
     Active Substance: CLOBETASOL
     Indication: Rash
  3. ELIDEL [Suspect]
     Active Substance: PIMECROLIMUS
     Indication: Product used for unknown indication
     Dosage: 1%
     Route: 003
  4. HYDROCORTISONE [Concomitant]
     Active Substance: HYDROCORTISONE
     Indication: Rash

REACTIONS (3)
  - Treatment failure [Unknown]
  - Gait disturbance [Unknown]
  - Condition aggravated [Unknown]
